FAERS Safety Report 10756437 (Version 4)
Quarter: 2019Q3

REPORT INFORMATION
  Report Type: Spontaneous
  Country: RU (occurrence: RU)
  Receive Date: 20150202
  Receipt Date: 20190916
  Transmission Date: 20191004
  Serious: Yes (Hospitalization, Disabling, Other)
  Sender: FDA-Public Use
  Company Number: RU-EMD SERONO-230001J09RUS

PATIENT
  Age: 45 Year
  Sex: Female
  Weight: 55 kg

DRUGS (3)
  1. REBIF [Suspect]
     Active Substance: INTERFERON BETA-1A
     Indication: MULTIPLE SCLEROSIS
     Route: 058
     Dates: start: 20080416
  2. REBIF [Suspect]
     Active Substance: INTERFERON BETA-1A
     Indication: MULTIPLE SCLEROSIS RELAPSE
     Dates: start: 200807, end: 200809
  3. REBIF [Suspect]
     Active Substance: INTERFERON BETA-1A
     Dates: end: 20081110

REACTIONS (21)
  - Tachycardia [Unknown]
  - Multiple sclerosis [Unknown]
  - Affect lability [Unknown]
  - Dizziness [Unknown]
  - Weight decreased [Unknown]
  - Decreased appetite [Unknown]
  - Arthralgia [Unknown]
  - Cardiac disorder [Unknown]
  - Suicidal ideation [Unknown]
  - Seizure [Unknown]
  - Influenza like illness [Unknown]
  - Nausea [Unknown]
  - Quality of life decreased [Unknown]
  - Retinal vascular disorder [Unknown]
  - Insomnia [Unknown]
  - Drug intolerance [Not Recovered/Not Resolved]
  - Nervousness [Unknown]
  - Bone pain [Unknown]
  - Product preparation issue [Not Recovered/Not Resolved]
  - Depression [Unknown]
  - Injection site inflammation [Unknown]

NARRATIVE: CASE EVENT DATE: 2008
